FAERS Safety Report 25885283 (Version 1)
Quarter: 2025Q4

REPORT INFORMATION
  Report Type: Report from Study
  Country: CA (occurrence: CA)
  Receive Date: 20251006
  Receipt Date: 20251006
  Transmission Date: 20260117
  Serious: Yes (Other)
  Sender: ABBVIE
  Company Number: CA-ABBVIE-6485941

PATIENT
  Sex: Female

DRUGS (1)
  1. SKYRIZI [Suspect]
     Active Substance: RISANKIZUMAB-RZAA
     Indication: Crohn^s disease
     Dosage: FORM STRENGTH: SOLUTION FOR INJECTION IN PRE-FILLED INJECTOR
     Route: 058

REACTIONS (4)
  - Large intestine polyp [Unknown]
  - Aphthous ulcer [Unknown]
  - Inflammation [Unknown]
  - Ulcer [Unknown]
